FAERS Safety Report 5990065-8 (Version None)
Quarter: 2008Q4

REPORT INFORMATION
  Report Type: 
  Country: None (occurrence: None)
  Receive Date: 20081211
  Receipt Date: 20070309
  Transmission Date: 20090506
  Serious: Yes (Other)
  Sender: FDA-Public Use
  Company Number: US-BRISTOL-MYERS SQUIBB COMPANY-14432447

PATIENT
  Age: 54 Year
  Sex: Male

DRUGS (18)
  1. CETUXIMAB [Suspect]
     Indication: NON-SMALL CELL LUNG CANCER
     Route: 042
     Dates: start: 20070222, end: 20070222
  2. PACLITAXEL [Suspect]
     Indication: NON-SMALL CELL LUNG CANCER
     Route: 042
     Dates: start: 20070222, end: 20070222
  3. CARBOPLATIN [Suspect]
     Indication: NON-SMALL CELL LUNG CANCER
     Route: 042
     Dates: start: 20070222, end: 20070222
  4. TYLENOL (CAPLET) [Concomitant]
     Indication: PAIN
     Dosage: ALSO TAKEN ON 06MAR07 AND 24FEB07
     Dates: start: 20070101
  5. TYLENOL (CAPLET) [Concomitant]
     Indication: PYREXIA
     Dosage: ALSO TAKEN ON 06MAR07 AND 24FEB07
     Dates: start: 20070101
  6. TYLENOL (CAPLET) [Concomitant]
     Indication: ARTHRALGIA
     Dosage: ALSO TAKEN ON 06MAR07 AND 24FEB07
     Dates: start: 20070101
  7. DEXAMETHASONE [Concomitant]
     Indication: PROPHYLAXIS
     Route: 048
     Dates: start: 20070221
  8. DEXAMETHASONE [Concomitant]
     Route: 042
     Dates: start: 20070222
  9. OXYCODONE HCL [Concomitant]
     Indication: PAIN
     Route: 065
     Dates: start: 20070101
  10. COMPAZINE [Concomitant]
     Indication: NAUSEA
     Dosage: TAKEN EVERY 4 TO 6 HRS
     Dates: start: 20070224
  11. COMPAZINE [Concomitant]
     Indication: VOMITING
     Dosage: TAKEN EVERY 4 TO 6 HRS
     Dates: start: 20070224
  12. KYTRIL [Concomitant]
     Indication: NAUSEA
     Dosage: AS REQUIRED
  13. IMODIUM [Concomitant]
     Indication: DIARRHOEA
  14. ATIVAN [Concomitant]
     Indication: INSOMNIA
     Dosage: AT NIGHT
     Dates: start: 20070227
  15. VITAMIN B6 [Concomitant]
     Dates: start: 20070227
  16. PREPARATION H [Concomitant]
     Route: 065
  17. ELIDEL [Concomitant]
     Indication: RASH
     Dates: start: 20070301
  18. AQUAPHOR [Concomitant]
     Indication: RASH
     Route: 065
     Dates: start: 20070228

REACTIONS (1)
  - PATHOLOGICAL FRACTURE [None]
